FAERS Safety Report 23544081 (Version 1)
Quarter: 2024Q1

REPORT INFORMATION
  Report Type: Report from Study
  Country: US (occurrence: US)
  Receive Date: 20240220
  Receipt Date: 20240220
  Transmission Date: 20240409
  Serious: Yes (Hospitalization)
  Sender: FDA-Public Use
  Company Number: US-JAZZ PHARMACEUTICALS-2023-US-009681

PATIENT
  Sex: Male

DRUGS (6)
  1. SODIUM OXYBATE [Suspect]
     Active Substance: SODIUM OXYBATE
     Indication: Narcolepsy
  2. SODIUM OXYBATE [Suspect]
     Active Substance: SODIUM OXYBATE
     Indication: Cataplexy
  3. SODIUM OXYBATE [Suspect]
     Active Substance: SODIUM OXYBATE
     Indication: Somnolence
  4. ADDERALL [Concomitant]
     Active Substance: AMPHETAMINE ASPARTATE\AMPHETAMINE SULFATE\DEXTROAMPHETAMINE SACCHARATE\DEXTROAMPHETAMINE SULFATE
     Indication: Product used for unknown indication
     Dosage: UNK
     Dates: start: 20141007
  5. ACANDIX [Concomitant]
     Indication: Product used for unknown indication
     Dosage: UNK
     Dates: start: 20190422
  6. RELAX [DIAZEPAM] [Concomitant]
     Indication: Product used for unknown indication
     Dosage: UNK
     Dates: start: 20190508

REACTIONS (4)
  - Hospitalisation [Unknown]
  - Irritable bowel syndrome [Unknown]
  - Haemoglobin decreased [Unknown]
  - Vomiting [Unknown]
